FAERS Safety Report 23474449 (Version 1)
Quarter: 2024Q1

REPORT INFORMATION
  Report Type: Report from Study
  Country: US (occurrence: US)
  Receive Date: 20240204
  Receipt Date: 20240204
  Transmission Date: 20240409
  Serious: Yes (Hospitalization, Other)
  Sender: FDA-Public Use
  Company Number: US-EXELIXIS-CABO-23062948

PATIENT
  Age: 77 Year
  Sex: Female
  Weight: 44.898 kg

DRUGS (16)
  1. CABOMETYX [Suspect]
     Active Substance: CABOZANTINIB S-MALATE
     Indication: Thyroid cancer
     Dosage: 20 MG, QOD (EVERY OTHER DAY)
     Route: 048
     Dates: start: 2020, end: 202304
  2. LENVIMA [Suspect]
     Active Substance: LENVATINIB
     Indication: Product used for unknown indication
     Dosage: 10 MG, QD CAPSULE
  3. ONDANSETRON HYDROCHLORIDE [Concomitant]
     Active Substance: ONDANSETRON HYDROCHLORIDE
  4. XGEVA [Concomitant]
     Active Substance: DENOSUMAB
  5. VITAMIN D3 [Concomitant]
     Active Substance: CHOLECALCIFEROL
  6. B COMPLEX TAB [Concomitant]
  7. SYNTHROID [Concomitant]
     Active Substance: LEVOTHYROXINE SODIUM
  8. PHOSPHA 250 NEUTRAL [Concomitant]
     Active Substance: POTASSIUM PHOSPHATE, MONOBASIC\SODIUM PHOSPHATE, DIBASIC, ANHYDROUS\SODIUM PHOSPHATE, MONOBASIC, MON
  9. METFORMIN HYDROCHLORIDE [Concomitant]
     Active Substance: METFORMIN HYDROCHLORIDE
  10. MAGNESIUM OXIDE [Concomitant]
     Active Substance: MAGNESIUM OXIDE
  11. LUMIGAN [Concomitant]
     Active Substance: BIMATOPROST
  12. LIPITOR [Concomitant]
     Active Substance: ATORVASTATIN CALCIUM
  13. IRON [Concomitant]
     Active Substance: IRON
  14. CALCIUM [Concomitant]
     Active Substance: CALCIUM
  15. BRINZOLAMIDE [Concomitant]
     Active Substance: BRINZOLAMIDE
  16. ALPHAGAN P [Concomitant]
     Active Substance: BRIMONIDINE TARTRATE

REACTIONS (15)
  - Dehydration [Unknown]
  - Weight decreased [Unknown]
  - Asthenia [Unknown]
  - Dehydration [Unknown]
  - Metastases to pancreas [Unknown]
  - Metastases to liver [Unknown]
  - Malaise [Unknown]
  - Abdominal discomfort [Unknown]
  - Hypophagia [Unknown]
  - Nausea [Unknown]
  - Fall [Unknown]
  - Loss of personal independence in daily activities [Unknown]
  - Drug ineffective [Unknown]
  - Inappropriate schedule of product administration [Unknown]
  - Product prescribing issue [Unknown]

NARRATIVE: CASE EVENT DATE: 20230401
